FAERS Safety Report 4932195-5 (Version None)
Quarter: 2006Q1

REPORT INFORMATION
  Report Type: 
  Country: None (occurrence: None)
  Receive Date: 20060228
  Receipt Date: 20060206
  Transmission Date: 20060701
  Serious: Yes (Other)
  Sender: FDA-Public Use
  Company Number: US200602001948

PATIENT
  Age: 74 Year
  Sex: Female

DRUGS (1)
  1. EVISTA [Suspect]
     Indication: OSTEOPOROSIS
     Dosage: 60 MG, ORAL
     Route: 048

REACTIONS (2)
  - BREAST CANCER [None]
  - OESTROGEN RECEPTOR ASSAY NEGATIVE [None]
